FAERS Safety Report 9665626 (Version 7)
Quarter: 2014Q1

REPORT INFORMATION
  Report Type: Report from Study
  Country: CA (occurrence: CA)
  Receive Date: 20131104
  Receipt Date: 20140213
  Transmission Date: 20141002
  Serious: Yes (Other)
  Sender: FDA-Public Use
  Company Number: CA-ROCHE-1155591

PATIENT
  Age: 24 Year
  Sex: Female
  Weight: 102 kg

DRUGS (16)
  1. ACTEMRA [Suspect]
     Indication: STILL^S DISEASE ADULT ONSET
     Route: 042
     Dates: start: 20120910
  2. ACTEMRA [Suspect]
     Indication: OFF LABEL USE
     Route: 042
     Dates: start: 20121015
  3. ACTEMRA [Suspect]
     Route: 042
     Dates: start: 20121213
  4. ACTEMRA [Suspect]
     Route: 042
     Dates: start: 20130614
  5. ACTEMRA [Suspect]
     Route: 065
     Dates: start: 20140103
  6. BENADRYL (CANADA) [Suspect]
     Indication: PRODUCT USED FOR UNKNOWN INDICATION
     Route: 065
  7. PREDNISONE [Suspect]
     Indication: PRODUCT USED FOR UNKNOWN INDICATION
     Route: 048
  8. TECTA [Concomitant]
  9. CELEBREX [Concomitant]
  10. TYLENOL [Concomitant]
     Dosage: AS REQUIRED
     Route: 065
  11. LASIX [Concomitant]
  12. FOLIC ACID [Concomitant]
  13. NORTRIPTYLINE [Concomitant]
  14. CITALOPRAM [Concomitant]
  15. METHOTREXATE [Concomitant]
  16. FESO4 [Concomitant]

REACTIONS (30)
  - Body temperature increased [Recovering/Resolving]
  - Heart rate increased [Recovering/Resolving]
  - Respiratory rate increased [Recovering/Resolving]
  - Pruritus [Unknown]
  - Weight increased [Unknown]
  - Dyspnoea [Recovering/Resolving]
  - H1N1 influenza [Unknown]
  - Oxygen saturation decreased [Recovered/Resolved]
  - Lung infection [Recovered/Resolved]
  - Arthralgia [Recovering/Resolving]
  - Still^s disease adult onset [Recovered/Resolved]
  - Pain [Not Recovered/Not Resolved]
  - Musculoskeletal stiffness [Not Recovered/Not Resolved]
  - Pyrexia [Recovering/Resolving]
  - Vomiting [Recovering/Resolving]
  - Nausea [Recovering/Resolving]
  - Arthralgia [Not Recovered/Not Resolved]
  - Anxiety [Not Recovered/Not Resolved]
  - Depression [Not Recovered/Not Resolved]
  - Weight loss poor [Not Recovered/Not Resolved]
  - Rash [Unknown]
  - Skin burning sensation [Recovered/Resolved]
  - Depressed mood [Not Recovered/Not Resolved]
  - Abdominal pain [Recovering/Resolving]
  - Blood pressure diastolic decreased [Recovering/Resolving]
  - Weight decreased [Recovering/Resolving]
  - Malaise [Unknown]
  - Drug ineffective [Unknown]
  - Swelling [Unknown]
  - Off label use [Unknown]
